FAERS Safety Report 16987820 (Version 1)
Quarter: 2019Q4

REPORT INFORMATION
  Report Type: Other
  Country: GB (occurrence: GB)
  Receive Date: 20191104
  Receipt Date: 20191104
  Transmission Date: 20200122
  Serious: Yes (Life-Threatening, Hospitalization, Other)
  Sender: FDA-Public Use
  Company Number: GB-STRIDES ARCOLAB LIMITED-2019SP010938

PATIENT
  Age: 36 Year
  Sex: Male

DRUGS (1)
  1. IBUPROFEN. [Suspect]
     Active Substance: IBUPROFEN
     Indication: ARTHRALGIA
     Dosage: UNK (TAKEN BETWEEN 10-30 TABLETS PER DAY FOR THE LAST 3 WEEKS)
     Route: 048

REACTIONS (2)
  - Accidental overdose [Unknown]
  - Acute kidney injury [Not Recovered/Not Resolved]
